FAERS Safety Report 8281614-8 (Version None)
Quarter: 2012Q2

REPORT INFORMATION
  Report Type: 
  Country: None (occurrence: None)
  Receive Date: 20120413
  Receipt Date: 20120302
  Transmission Date: 20120825
  Serious: Yes (Hospitalization, Other)
  Sender: FDA-Public Use
  Company Number: FR-JNJFOC-20120401306

PATIENT
  Age: 40 Year
  Sex: Female
  Weight: 47 kg

DRUGS (5)
  1. REMICADE [Suspect]
     Indication: CROHN'S DISEASE
     Route: 042
     Dates: start: 20120209
  2. ACETAMINOPHEN [Concomitant]
     Indication: CROHN'S DISEASE
     Route: 065
     Dates: start: 20120201
  3. TRAMADOL HCL [Concomitant]
     Indication: CROHN'S DISEASE
     Route: 065
     Dates: start: 20120201
  4. POLYETHYLENE GLYCOL [Concomitant]
     Indication: CROHN'S DISEASE
     Route: 065
     Dates: start: 20120201
  5. REMICADE [Suspect]
     Route: 042
     Dates: start: 20120117

REACTIONS (6)
  - RASH [None]
  - INFUSION RELATED REACTION [None]
  - OXYGEN SATURATION DECREASED [None]
  - CHEST DISCOMFORT [None]
  - HYPERSENSITIVITY [None]
  - SUBILEUS [None]
